FAERS Safety Report 9435161 (Version 1)
Quarter: 2013Q3

REPORT INFORMATION
  Report Type: Spontaneous
  Country: US (occurrence: US)
  Receive Date: 20130801
  Receipt Date: 20130801
  Transmission Date: 20140515
  Serious: No
  Sender: FDA-Public Use
  Company Number: US-BAYER-2013-092574

PATIENT
  Age: 27 Year
  Sex: Male
  Weight: 61.22 kg

DRUGS (2)
  1. ALEVE GELCAPS [Suspect]
     Indication: ANALGESIC THERAPY
     Dosage: 2 DF, ONCE
     Route: 048
     Dates: start: 20130727, end: 20130727
  2. VITAMIN D [Concomitant]

REACTIONS (3)
  - Headache [Not Recovered/Not Resolved]
  - Hangover [Not Recovered/Not Resolved]
  - Head discomfort [Not Recovered/Not Resolved]
